FAERS Safety Report 8886378 (Version 1)
Quarter: 2012Q4

REPORT INFORMATION
  Report Type: 
  Country: US (occurrence: US)
  Receive Date: 20121105
  Receipt Date: 20121105
  Transmission Date: 20130627
  Serious: Yes (Hospitalization)
  Sender: FDA-Public Use
  Company Number: US-GLAXOSMITHKLINE-A0899123A

PATIENT
  Age: 42 Year
  Sex: Female

DRUGS (1)
  1. AVANDIA [Suspect]
     Indication: DIABETES MELLITUS
     Route: 048

REACTIONS (6)
  - Heart rate irregular [Not Recovered/Not Resolved]
  - Chest pain [Unknown]
  - Lung disorder [Unknown]
  - Dizziness [Unknown]
  - Hypertension [Unknown]
  - Dyspnoea [Unknown]
